FAERS Safety Report 8574221-0 (Version None)
Quarter: 2012Q3

REPORT INFORMATION
  Report Type: 
  Country: None (occurrence: None)
  Receive Date: 20120806
  Receipt Date: 20110228
  Transmission Date: 20120928
  Serious: Yes (Death, Hospitalization, Other)
  Sender: FDA-Public Use
  Company Number: DE-CELGENEUS-062-50794-12052547

PATIENT
  Age: 75 Year
  Sex: Female
  Weight: 60 kg

DRUGS (17)
  1. METOPROLOL TARTRATE [Concomitant]
     Route: 065
  2. ZOLOFT [Concomitant]
     Route: 065
  3. TRIMIPRAMINE MALEATE [Concomitant]
     Route: 065
  4. ZOPICLON [Concomitant]
     Route: 065
  5. LANSOPRAZOLE [Concomitant]
     Route: 065
  6. VIDAZA [Suspect]
     Dosage: 75 MILLIGRAM/SQ. METER
     Route: 058
     Dates: start: 20100304, end: 20100910
  7. ARANESP [Concomitant]
     Route: 065
     Dates: start: 20070401
  8. STEROIDS [Concomitant]
     Route: 065
  9. FLUVASTATIN SODIUM [Concomitant]
     Route: 065
  10. DURAGESIC-100 [Concomitant]
     Route: 065
  11. EPOETIN [Concomitant]
     Route: 065
     Dates: start: 20100805, end: 20100812
  12. RED BLOOD CELLS [Concomitant]
     Route: 041
     Dates: start: 20100305
  13. RED BLOOD CELLS [Concomitant]
     Route: 041
     Dates: start: 20101010
  14. NORVASC [Concomitant]
     Route: 065
  15. PREDNISONE TAB [Concomitant]
     Route: 065
  16. PLATELETS [Concomitant]
     Route: 041
     Dates: start: 20101010
  17. ALLOPURINOL [Concomitant]
     Dosage: 100 MILLIGRAM
     Route: 065

REACTIONS (15)
  - DYSPNOEA [None]
  - VOMITING [None]
  - PLATELET DISORDER [None]
  - FATIGUE [None]
  - CUSHINGOID [None]
  - COUGH [None]
  - WHITE BLOOD CELL DISORDER [None]
  - NEOPLASM [None]
  - URINARY TRACT INFECTION [None]
  - NAUSEA [None]
  - GENERAL PHYSICAL HEALTH DETERIORATION [None]
  - INTESTINAL HAEMORRHAGE [None]
  - HAEMOGLOBIN ABNORMAL [None]
  - PNEUMONIA [None]
  - DIARRHOEA [None]
